FAERS Safety Report 5963148-6 (Version None)
Quarter: 2008Q4

REPORT INFORMATION
  Report Type: 
  Country: None (occurrence: None)
  Receive Date: 20081119
  Receipt Date: 20080731
  Transmission Date: 20090506
  Serious: No
  Sender: FDA-Public Use
  Company Number: WAES 0808USA00160

PATIENT
  Sex: Male

DRUGS (2)
  1. JANUVIA [Suspect]
     Dosage: PO
     Route: 048
  2. LANTUS [Suspect]

REACTIONS (1)
  - SWOLLEN TONGUE [None]
